FAERS Safety Report 5506927-1 (Version None)
Quarter: 2007Q4

REPORT INFORMATION
  Report Type: 
  Country: None (occurrence: None)
  Receive Date: 20071105
  Receipt Date: 20071101
  Transmission Date: 20080405
  Serious: Yes (Other)
  Sender: FDA-Public Use
  Company Number: IL-PFIZER INC-2007089473

PATIENT
  Age: 68 Year
  Sex: Male

DRUGS (2)
  1. LUSTRAL [Suspect]
     Indication: DEPRESSION
     Route: 048
  2. ACETYLSALICYLIC ACID SRT [Concomitant]

REACTIONS (5)
  - ATAXIA [None]
  - MASKED FACIES [None]
  - MENTAL DISORDER [None]
  - PARKINSON'S DISEASE [None]
  - SEROTONIN SYNDROME [None]
